FAERS Safety Report 13460278 (Version 1)
Quarter: 2017Q2

REPORT INFORMATION
  Report Type: Spontaneous
  Country: US (occurrence: US)
  Receive Date: 20170420
  Receipt Date: 20170420
  Transmission Date: 20170830
  Serious: No
  Sender: FDA-Public Use
  Company Number: US-ASTRAZENECA-2017SE38258

PATIENT
  Age: 74 Year
  Sex: Female

DRUGS (23)
  1. ULTRAM [Concomitant]
     Active Substance: TRAMADOL HYDROCHLORIDE
  2. RELAFEN [Concomitant]
     Active Substance: NABUMETONE
  3. NEURONTIN [Suspect]
     Active Substance: GABAPENTIN
     Route: 065
  4. PERCOCET [Concomitant]
     Active Substance: ACETAMINOPHEN\OXYCODONE HYDROCHLORIDE
  5. DARVOCET-N 100 [Concomitant]
     Active Substance: ACETAMINOPHEN\PROPOXYPHENE NAPSYLATE
  6. MORPHINE SULFATE. [Concomitant]
     Active Substance: MORPHINE SULFATE
  7. ANORO ELLIPTA [Concomitant]
     Active Substance: UMECLIDINIUM BROMIDE\VILANTEROL TRIFENATATE
  8. PRADAXA [Concomitant]
     Active Substance: DABIGATRAN ETEXILATE MESYLATE
  9. PROAIR HFA [Concomitant]
     Active Substance: ALBUTEROL SULFATE
  10. MYRBETRIQ [Concomitant]
     Active Substance: MIRABEGRON
  11. LASIX [Concomitant]
     Active Substance: FUROSEMIDE
  12. DITROPAN [Concomitant]
     Active Substance: OXYBUTYNIN CHLORIDE
  13. PREDNISONE. [Concomitant]
     Active Substance: PREDNISONE
  14. ALBUTEROL SULFATE. [Concomitant]
     Active Substance: ALBUTEROL SULFATE
  15. ASMANEX [Concomitant]
     Active Substance: MOMETASONE FUROATE
  16. ZETIA [Concomitant]
     Active Substance: EZETIMIBE
  17. LYRICA [Suspect]
     Active Substance: PREGABALIN
     Route: 065
  18. ZEBETA [Concomitant]
     Active Substance: BISOPROLOL FUMARATE
  19. LIPITOR [Suspect]
     Active Substance: ATORVASTATIN CALCIUM
     Route: 065
  20. COZAAR [Concomitant]
     Active Substance: LOSARTAN POTASSIUM
  21. LEVAQUIN [Concomitant]
     Active Substance: LEVOFLOXACIN
  22. PRILOSEC [Suspect]
     Active Substance: OMEPRAZOLE MAGNESIUM
     Route: 048
  23. VICODIN [Concomitant]
     Active Substance: ACETAMINOPHEN\HYDROCODONE BITARTRATE

REACTIONS (1)
  - Neuropathy peripheral [Unknown]
